FAERS Safety Report 6969626-5 (Version None)
Quarter: 2010Q3

REPORT INFORMATION
  Report Type: 
  Country: None (occurrence: None)
  Receive Date: 20100907
  Receipt Date: 20100903
  Transmission Date: 20110219
  Serious: Yes (Hospitalization)
  Sender: FDA-Public Use
  Company Number: GB-BRISTOL-MYERS SQUIBB COMPANY-15271349

PATIENT
  Age: 1 Year

DRUGS (3)
  1. CYCLOPHOSPHAMIDE [Suspect]
     Indication: CHOROID PLEXUS CARCINOMA
     Dosage: COURSE:6;DAYS 2 AND 3
  2. ETOPOSIDE [Suspect]
     Indication: CHOROID PLEXUS CARCINOMA
     Dosage: COURSE:6;AT 21-DAY INTERVALS WITH ETOPOSIDE DAYS 1-5,
  3. VINCRISTINE SULFATE [Suspect]
     Indication: CHOROID PLEXUS CARCINOMA
     Dosage: COURSE:6

REACTIONS (1)
  - PNEUMOCOCCAL INFECTION [None]
